FAERS Safety Report 20527728 (Version 3)
Quarter: 2022Q1

REPORT INFORMATION
  Report Type: Spontaneous
  Country: JP (occurrence: JP)
  Receive Date: 20220228
  Receipt Date: 20220328
  Transmission Date: 20220424
  Serious: Yes (Hospitalization, Other)
  Sender: FDA-Public Use
  Company Number: JP-MSD-2202JPN003604J

PATIENT
  Age: 88 Year
  Sex: Female

DRUGS (11)
  1. MOLNUPIRAVIR [Suspect]
     Active Substance: MOLNUPIRAVIR
     Indication: COVID-19 treatment
     Dosage: 800 MILLIGRAM, BID
     Route: 048
     Dates: start: 20220215, end: 20220217
  2. ASPIRIN\DIHYDROXYALUMINUM AMINOACETATE ANHYDROUS\MAGNESIUM CARBONATE [Suspect]
     Active Substance: ASPIRIN\DIHYDROXYALUMINUM AMINOACETATE ANHYDROUS\MAGNESIUM CARBONATE
     Dosage: 0.5 DOSAGE FORM, QD
     Route: 048
     Dates: start: 20211227
  3. METHYLCOBALAMIN [Suspect]
     Active Substance: METHYLCOBALAMIN
     Dosage: 1 DOSAGE FORM, BID
     Route: 048
     Dates: start: 20211227
  4. ALFACALCIDOL [Suspect]
     Active Substance: ALFACALCIDOL
     Dosage: 1 DOSAGE FORM, BID
     Route: 048
     Dates: start: 20211227
  5. CALCIUM ASPARTATE [Suspect]
     Active Substance: CALCIUM ASPARTATE
     Dosage: 1 DOSAGE FORM, BID
     Route: 048
     Dates: start: 20211227
  6. BISOPROLOL FUMARATE [Suspect]
     Active Substance: BISOPROLOL FUMARATE
     Dosage: 1 DOSAGE FORM, QD
     Route: 048
     Dates: start: 20220202
  7. AMLODIPINE BESYLATE [Suspect]
     Active Substance: AMLODIPINE BESYLATE
     Dosage: 1 DOSAGE FORM, QD
     Route: 048
  8. AMLODIPINE BESYLATE [Suspect]
     Active Substance: AMLODIPINE BESYLATE
     Dosage: 1 DOSAGE FORM, QD
     Route: 048
  9. ATORVASTATIN CALCIUM TRIHYDRATE [Suspect]
     Active Substance: ATORVASTATIN CALCIUM TRIHYDRATE
     Dosage: 2 DOSAGE FORM, QD
     Route: 048
     Dates: start: 20220202
  10. ETIZOLAM [Suspect]
     Active Substance: ETIZOLAM
     Dosage: 1 DOSAGE FORM, QD
     Route: 048
     Dates: end: 20220221
  11. BROTIZOLAM [Suspect]
     Active Substance: BROTIZOLAM
     Dosage: 1 DOSAGE FORM, QD
     Route: 048
     Dates: end: 20220221

REACTIONS (2)
  - Depressed level of consciousness [Recovering/Resolving]
  - Pyrexia [Unknown]

NARRATIVE: CASE EVENT DATE: 20220216
